FAERS Safety Report 5296189-5 (Version None)
Quarter: 2007Q2

REPORT INFORMATION
  Report Type: 
  Country: None (occurrence: None)
  Receive Date: 20070413
  Receipt Date: 20070410
  Transmission Date: 20071010
  Serious: Yes (Hospitalization)
  Sender: FDA-Public Use
  Company Number: US-GLAXOSMITHKLINE-A0646897A

PATIENT
  Age: 68 Year
  Sex: Female

DRUGS (12)
  1. AVANDIA [Suspect]
     Route: 048
     Dates: start: 20061101, end: 20070401
  2. PLAVIX [Concomitant]
  3. LEVOTHYROXINE SODIUM [Concomitant]
  4. LESCOL [Concomitant]
  5. ZETIA [Concomitant]
  6. KLOR-CON [Concomitant]
  7. NITROGLYCERIN [Concomitant]
  8. FUROSEMIDE [Concomitant]
  9. ACETAMINOPHEN W/ CODEINE TAB [Concomitant]
  10. ATENOLOL [Concomitant]
  11. AMITRIPTYLINE HCL [Concomitant]
  12. ASPIRIN [Concomitant]

REACTIONS (5)
  - BLISTER [None]
  - FLUID RETENTION [None]
  - OEDEMA PERIPHERAL [None]
  - PNEUMONIA [None]
  - WEIGHT INCREASED [None]
